FAERS Safety Report 11180839 (Version 1)
Quarter: 2015Q2

REPORT INFORMATION
  Report Type: Spontaneous
  Country: DK (occurrence: DK)
  Receive Date: 20150611
  Receipt Date: 20150611
  Transmission Date: 20150821
  Serious: Yes (Hospitalization)
  Sender: FDA-Public Use
  Company Number: DK-ACTAVIS-2015-11424

PATIENT
  Age: 95 Year
  Sex: Male

DRUGS (10)
  1. ALFACALCIDOL [Concomitant]
     Active Substance: ALFACALCIDOL
     Indication: VITAMIN SUPPLEMENTATION
     Dosage: UNK
     Route: 065
  2. DIGOXIN. [Concomitant]
     Active Substance: DIGOXIN
     Indication: ATRIAL FIBRILLATION
     Dosage: UNK
     Route: 065
  3. SELEXID /00576301/ [Suspect]
     Active Substance: AMDINOCILLIN
     Indication: CYSTITIS
     Dosage: 400 MG, TID
     Route: 048
     Dates: start: 20150424, end: 20150506
  4. MOVICOL [Suspect]
     Active Substance: POLYETHYLENE GLYCOL 3350\POTASSIUM CHLORIDE\SODIUM BICARBONATE\SODIUM CHLORIDE
     Indication: CONSTIPATION
     Dosage: 1 DF, UNK
     Route: 048
     Dates: start: 201504, end: 20150506
  5. TRADOLAN [Concomitant]
     Active Substance: TRAMADOL
     Indication: PAIN
     Dosage: UNK
     Route: 065
  6. CLOPIDOGREL ACTAVIS//CLOPIDOGREL BESYLATE [Suspect]
     Active Substance: CLOPIDOGREL BESILATE
     Indication: ATRIAL FIBRILLATION
     Dosage: 75 MG, DAILY
     Route: 048
     Dates: start: 20150429, end: 20150506
  7. JERN C [Concomitant]
     Indication: MINERAL SUPPLEMENTATION
     Dosage: UNK
     Route: 065
  8. CALCIUM + VITAMIN D3 [Concomitant]
     Indication: MINERAL SUPPLEMENTATION
     Dosage: UNK
     Route: 065
  9. APOVIT FOLSYRE STAERK [Suspect]
     Active Substance: FOLIC ACID
     Indication: VITAMIN SUPPLEMENTATION
     Dosage: 1 DF, DAILY
     Route: 048
     Dates: start: 20150421, end: 20150505
  10. PAMOL [Concomitant]
     Active Substance: ACETAMINOPHEN
     Indication: PAIN
     Dosage: UNK
     Route: 065

REACTIONS (1)
  - Angioedema [Recovered/Resolved]

NARRATIVE: CASE EVENT DATE: 20150506
